FAERS Safety Report 7545324-4 (Version None)
Quarter: 2011Q2

REPORT INFORMATION
  Report Type: 
  Country: None (occurrence: None)
  Receive Date: 20110614
  Receipt Date: 20110609
  Transmission Date: 20111010
  Serious: Yes (Life-Threatening)
  Sender: FDA-Public Use
  Company Number: FR-ELI_LILLY_AND_COMPANY-FR201106002493

PATIENT
  Sex: Female

DRUGS (7)
  1. EQUANIL [Concomitant]
  2. CYMBALTA [Suspect]
     Dosage: UNK, UNKNOWN
     Dates: start: 20110422
  3. TRANXENE [Concomitant]
  4. DAFLON [Concomitant]
     Dosage: 1000 MG, QD
     Route: 048
  5. CYMBALTA [Suspect]
     Dosage: 60 MG, QD
     Route: 048
     Dates: start: 20110106, end: 20110407
  6. PRAVASTATIN SODIUM [Concomitant]
  7. NISIS [Concomitant]
     Dosage: 40 DF, UNK

REACTIONS (5)
  - HYPOKALAEMIA [None]
  - WEIGHT DECREASED [None]
  - ELECTROCARDIOGRAM QT PROLONGED [None]
  - DIARRHOEA [None]
  - COLITIS COLLAGENOUS [None]
